FAERS Safety Report 22522726 (Version 1)
Quarter: 2023Q2

REPORT INFORMATION
  Report Type: Spontaneous
  Country: CN (occurrence: CN)
  Receive Date: 20230605
  Receipt Date: 20230605
  Transmission Date: 20230721
  Serious: Yes (Hospitalization)
  Sender: FDA-Public Use
  Company Number: CN-BAYER-2023A075949

PATIENT
  Age: 82 Year
  Sex: Female

DRUGS (3)
  1. XARELTO [Suspect]
     Active Substance: RIVAROXABAN
     Indication: Atrial fibrillation
     Dosage: 20 MG, QD
     Route: 048
     Dates: start: 20230228, end: 20230521
  2. XARELTO [Suspect]
     Active Substance: RIVAROXABAN
     Indication: Anticoagulant therapy
     Route: 048
  3. NORVASC [Suspect]
     Active Substance: AMLODIPINE BESYLATE
     Indication: Blood pressure abnormal
     Dosage: 5 MG, QD
     Route: 048
     Dates: start: 20230228, end: 20230521

REACTIONS (5)
  - Blood bilirubin increased [Recovering/Resolving]
  - Aspartate aminotransferase increased [Recovering/Resolving]
  - Hepatic failure [Recovering/Resolving]
  - Yellow skin [Recovering/Resolving]
  - Ocular icterus [Recovering/Resolving]

NARRATIVE: CASE EVENT DATE: 20230501
